FAERS Safety Report 5997299-7 (Version None)
Quarter: 2008Q4

REPORT INFORMATION
  Report Type: 
  Country: None (occurrence: None)
  Receive Date: 20081204
  Receipt Date: 20081118
  Transmission Date: 20090506
  Serious: No
  Sender: FDA-Public Use
  Company Number: B0548279A

PATIENT
  Sex: 0

DRUGS (1)
  1. DIGOXIN [Suspect]
     Dosage: .25 MG / ORAL
     Route: 048

REACTIONS (3)
  - ELECTROCARDIOGRAM PR SHORTENED [None]
  - ELECTROCARDIOGRAM QT PROLONGED [None]
  - ELECTROCARDIOGRAM ST-T CHANGE [None]
